FAERS Safety Report 7214340-4 (Version None)
Quarter: 2011Q1

REPORT INFORMATION
  Report Type: 
  Country: None (occurrence: None)
  Receive Date: 20110107
  Receipt Date: 20110105
  Transmission Date: 20110831
  Serious: Yes (Death)
  Sender: FDA-Public Use
  Company Number: PHFR2010IE01223

PATIENT
  Sex: Male

DRUGS (9)
  1. HALOPERIDOL [Concomitant]
     Dosage: 30 MG, QD
  2. BISOPROLOL [Concomitant]
     Dosage: 7.5 MG, QD
  3. LOW CENTYL K [Concomitant]
     Dosage: 1.25 MG, QD
     Route: 048
  4. PRAZOSIN HCL [Concomitant]
     Dosage: 1000 UG, QD
     Route: 048
  5. CLOZARIL [Suspect]
     Indication: SCHIZOPHRENIA
     Dosage: 275 MG, QD
     Route: 048
     Dates: start: 20070312
  6. CLOZARIL [Suspect]
     Dosage: 275 MG, QD
     Route: 048
     Dates: start: 20080724
  7. AMISULPRIDE [Concomitant]
     Dosage: 400 MG, QD
     Route: 048
  8. VALPROATE SODIUM [Concomitant]
     Dosage: 1000 MG, QD
     Route: 048
  9. CENTRUM [Concomitant]
     Dosage: 1 DF, QD
     Route: 048

REACTIONS (1)
  - DEATH [None]
